FAERS Safety Report 16391571 (Version 2)
Quarter: 2019Q4

REPORT INFORMATION
  Report Type: Report from Study
  Country: IT (occurrence: IT)
  Receive Date: 20190605
  Receipt Date: 20191002
  Transmission Date: 20200122
  Serious: Yes (Death)
  Sender: FDA-Public Use
  Company Number: IT-TEVA-2019-IT-1058166

PATIENT
  Age: 68 Year
  Sex: Male
  Weight: 50 kg

DRUGS (1)
  1. FLUOROURACIL. [Suspect]
     Active Substance: FLUOROURACIL
     Indication: GASTRIC CANCER
     Route: 065

REACTIONS (1)
  - Acute myocardial infarction [Fatal]
